FAERS Safety Report 4834225-8 (Version None)
Quarter: 2005Q4

REPORT INFORMATION
  Report Type: 
  Country: None (occurrence: None)
  Receive Date: 20051122
  Receipt Date: 20051117
  Transmission Date: 20060501
  Serious: Yes (Hospitalization)
  Sender: FDA-Public Use
  Company Number: GB-BRISTOL-MYERS SQUIBB COMPANY-13187869

PATIENT
  Sex: Female

DRUGS (1)
  1. HYDROXYCARBAMIDE [Suspect]
     Route: 048

REACTIONS (1)
  - PULMONARY EMBOLISM [None]
